FAERS Safety Report 9782406 (Version 1)
Quarter: 2013Q4

REPORT INFORMATION
  Report Type: Spontaneous
  Country: AU (occurrence: AU)
  Receive Date: 20131226
  Receipt Date: 20131226
  Transmission Date: 20140711
  Serious: Yes (Other)
  Sender: FDA-Public Use
  Company Number: PHHY2013AU150098

PATIENT
  Age: 57 Year
  Sex: Male

DRUGS (1)
  1. CLOZAPINE [Suspect]
     Dosage: UNK

REACTIONS (3)
  - Intestinal perforation [Unknown]
  - Megacolon [Unknown]
  - Constipation [Unknown]
